FAERS Safety Report 17844366 (Version 1)
Quarter: 2020Q2

REPORT INFORMATION
  Report Type: Spontaneous
  Country: US (occurrence: US)
  Receive Date: 20200601
  Receipt Date: 20200601
  Transmission Date: 20200714
  Serious: No
  Sender: FDA-Public Use
  Company Number: US-UCBSA-2019050486

PATIENT
  Sex: Female

DRUGS (17)
  1. COQ [Concomitant]
  2. ESTROGEN NOS;METHYLTESTOSTERONE [Concomitant]
  3. FISH OIL [Concomitant]
     Active Substance: FISH OIL
  4. LOSARTAN. [Concomitant]
     Active Substance: LOSARTAN
  5. METOPROLOL TARTRATE. [Concomitant]
     Active Substance: METOPROLOL TARTRATE
  6. CIMZIA [Suspect]
     Active Substance: CERTOLIZUMAB PEGOL
     Indication: PSORIASIS
  7. NIACIN. [Concomitant]
     Active Substance: NIACIN
  8. FLAXSEED OIL [LINUM USITATISSIMUM OIL] [Concomitant]
  9. CIMZIA [Suspect]
     Active Substance: CERTOLIZUMAB PEGOL
     Indication: PSORIATIC ARTHROPATHY
     Dosage: 400 MILLIGRAM, EV 2 WEEKS(QOW)
     Route: 058
     Dates: start: 20191029
  10. NEXIUM 24HR [Concomitant]
     Active Substance: ESOMEPRAZOLE MAGNESIUM
  11. OLMESARTAN + HIDROCLOROTIAZIDA SANDOZ [Concomitant]
  12. ASPIRIN (E.C.) [Concomitant]
     Active Substance: ASPIRIN
     Dosage: 81 MILLIGRAM
  13. IODINE. [Concomitant]
     Active Substance: IODINE
  14. PROGESTERONE. [Concomitant]
     Active Substance: PROGESTERONE
  15. MULTIVITAMIN (16) [Concomitant]
     Active Substance: VITAMINS
  16. METHOTREXATE. [Concomitant]
     Active Substance: METHOTREXATE
  17. NALTREXONE [Concomitant]
     Active Substance: NALTREXONE

REACTIONS (1)
  - Psoriatic arthropathy [Unknown]
